FAERS Safety Report 19738938 (Version 3)
Quarter: 2021Q3

REPORT INFORMATION
  Report Type: Report from Study
  Country: US (occurrence: US)
  Receive Date: 20210824
  Receipt Date: 20210916
  Transmission Date: 20211014
  Serious: Yes (Hospitalization)
  Sender: FDA-Public Use
  Company Number: US-CELGENEUS-USA-20210803752

PATIENT
  Age: 62 Year
  Sex: Male
  Weight: 79.4 kg

DRUGS (85)
  1. FARXIGA [Concomitant]
     Active Substance: DAPAGLIFLOZIN PROPANEDIOL
     Indication: DIABETES MELLITUS
     Dosage: 10 MILLIGRAM
     Route: 048
     Dates: start: 20200114
  2. WARFARIN [Concomitant]
     Active Substance: WARFARIN
     Dosage: 3 MILLIGRAM
     Route: 048
     Dates: start: 20201205, end: 20201206
  3. WARFARIN [Concomitant]
     Active Substance: WARFARIN
     Dosage: 3 MILLIGRAM
     Route: 048
     Dates: start: 20210806, end: 20210806
  4. WARFARIN [Concomitant]
     Active Substance: WARFARIN
     Dosage: 3MILLIGRAM
     Route: 048
     Dates: start: 20210816
  5. ANBESOL REGULAR STRENGTH GEL [Concomitant]
     Active Substance: BENZOCAINE
     Indication: ORAL PAIN
     Route: 061
     Dates: start: 20210806
  6. ARIXTRA [Concomitant]
     Active Substance: FONDAPARINUX SODIUM
     Dosage: 7.5 MILLIGRAM
     Route: 058
     Dates: start: 20210807, end: 20210813
  7. PREDNISONE. [Concomitant]
     Active Substance: PREDNISONE
     Dosage: 2.5 MILLIGRAM
     Route: 058
     Dates: start: 20210731, end: 20210804
  8. CEFOXITIN [Concomitant]
     Active Substance: CEFOXITIN SODIUM
     Indication: PROPHYLAXIS
     Dosage: 2G
     Route: 041
     Dates: start: 20210728, end: 20210729
  9. LOSARTAN. [Concomitant]
     Active Substance: LOSARTAN
     Dosage: 20 MILLIGRAM
     Route: 048
     Dates: start: 20200617, end: 20200617
  10. COLCHICINE. [Concomitant]
     Active Substance: COLCHICINE
     Indication: GOUT
     Dosage: 1.2 MILLIGRAM
     Route: 048
     Dates: start: 20200403, end: 20200413
  11. ATORVASTATIN [Concomitant]
     Active Substance: ATORVASTATIN
     Indication: HYPERLIPIDAEMIA
     Dosage: 40 MILLIGRAM
     Route: 048
     Dates: start: 202003, end: 202006
  12. WARFARIN [Concomitant]
     Active Substance: WARFARIN
     Dosage: 1.5 MILLIGRAM
     Route: 048
     Dates: start: 20201207, end: 20201207
  13. CYMBALTA [Concomitant]
     Active Substance: DULOXETINE HYDROCHLORIDE
     Indication: NEURALGIA
     Dosage: 20 MILLIGRAM
     Route: 048
     Dates: start: 20210412, end: 20210419
  14. FLOMAX [Concomitant]
     Active Substance: TAMSULOSIN HYDROCHLORIDE
     Indication: DYSURIA
     Dosage: .4 MILLIGRAM
     Route: 048
     Dates: start: 20210318
  15. COLACE [Concomitant]
     Active Substance: DOCUSATE SODIUM
     Route: 048
     Dates: start: 20210806
  16. PREDNISONE. [Concomitant]
     Active Substance: PREDNISONE
     Indication: INFLAMMATORY BOWEL DISEASE
     Dosage: 15 MILLIGRAM
     Route: 048
     Dates: start: 20210808
  17. LACTATED RINGERS SOLUTION [Concomitant]
     Active Substance: CALCIUM CHLORIDE\POTASSIUM CHLORIDE\SODIUM CHLORIDE\SODIUM LACTATE
     Indication: FLUID REPLACEMENT
     Dosage: 1000ML
     Route: 041
     Dates: start: 20210728, end: 20210729
  18. ISOVUE [Concomitant]
     Active Substance: IOPAMIDOL
     Indication: IMAGING PROCEDURE
     Dosage: 66ML
     Route: 041
     Dates: start: 20210805, end: 20210807
  19. LOSARTAN. [Concomitant]
     Active Substance: LOSARTAN
     Dosage: 25 MILLIGRAM
     Route: 048
     Dates: start: 20200630, end: 20200704
  20. ACETAMINOPHEN. [Concomitant]
     Active Substance: ACETAMINOPHEN
     Indication: PAIN
     Route: 048
     Dates: start: 20200604, end: 20200612
  21. OZEMPIC [Concomitant]
     Active Substance: SEMAGLUTIDE
     Indication: DIABETES MELLITUS
     Dosage: .0357 MILLIGRAM
     Route: 030
     Dates: start: 20200114
  22. ATORVASTATIN [Concomitant]
     Active Substance: ATORVASTATIN
     Dosage: 40 MILLIGRAM
     Route: 048
     Dates: start: 20210805
  23. CIPROFLOXACIN. [Concomitant]
     Active Substance: CIPROFLOXACIN
     Dosage: 1000 MILLIGRAM
     Route: 048
     Dates: start: 20210806, end: 20210809
  24. IMODIUM [Concomitant]
     Active Substance: LOPERAMIDE HYDROCHLORIDE
     Dosage: 2.5 MILLIGRAM
     Route: 058
     Dates: start: 20210731, end: 20210804
  25. MIDAZOLAM. [Concomitant]
     Active Substance: MIDAZOLAM
     Indication: SEDATIVE THERAPY
     Dosage: 2MG
     Route: 041
     Dates: start: 20210728, end: 20210729
  26. LOSARTAN. [Concomitant]
     Active Substance: LOSARTAN
     Dosage: 50 MILLIGRAM
     Route: 048
     Dates: start: 20200617, end: 20200618
  27. ASPIRIN. [Concomitant]
     Active Substance: ASPIRIN
     Indication: ARTHRITIS
     Dosage: 81 MILLIGRAM
     Route: 048
     Dates: start: 2008, end: 20210720
  28. ASPIRIN. [Concomitant]
     Active Substance: ASPIRIN
     Indication: ANTICOAGULANT THERAPY
     Dosage: 325 MILLIGRAM
     Route: 048
     Dates: start: 20210805, end: 20210805
  29. PREDNISONE. [Concomitant]
     Active Substance: PREDNISONE
     Dosage: 7.5 MILLIGRAM
     Route: 058
     Dates: start: 20210807, end: 20210813
  30. SCOPACE [Concomitant]
     Active Substance: SCOPOLAMINE HYDROBROMIDE
     Indication: PROCEDURAL NAUSEA
     Dosage: 1MG
     Route: 062
     Dates: start: 20210728, end: 20210729
  31. LOSARTAN. [Concomitant]
     Active Substance: LOSARTAN
     Indication: HYPERTENSION
     Dosage: 100 MILLIGRAM
     Route: 048
     Dates: start: 2008, end: 20200616
  32. ASPIRIN. [Concomitant]
     Active Substance: ASPIRIN
     Dosage: 81 MILLIGRAM
     Route: 048
     Dates: start: 20210806, end: 20210806
  33. INVOKANA [Concomitant]
     Active Substance: CANAGLIFLOZIN
     Indication: TYPE 2 DIABETES MELLITUS
     Dosage: 300 MILLIGRAM
     Route: 048
     Dates: start: 2015, end: 20200114
  34. NOVOLOG [Concomitant]
     Active Substance: INSULIN ASPART
     Indication: DIABETES MELLITUS
     Dosage: 1
     Route: 030
     Dates: start: 201909
  35. CLOPIDOGREL [Concomitant]
     Active Substance: CLOPIDOGREL BISULFATE
     Indication: THROMBOSIS PROPHYLAXIS
     Route: 048
     Dates: start: 20200610
  36. PANTOPRAZOLE [Concomitant]
     Active Substance: PANTOPRAZOLE
     Indication: GASTRIC ULCER
     Dosage: 40 MILLIGRAM
     Route: 048
     Dates: start: 20200616, end: 20201205
  37. WARFARIN [Concomitant]
     Active Substance: WARFARIN
     Indication: ANTICOAGULANT THERAPY
     Dosage: 1.7143 MILLIGRAM
     Route: 048
     Dates: start: 20201119, end: 20201202
  38. WARFARIN [Concomitant]
     Active Substance: WARFARIN
     Dosage: 1.5 MILLIGRAM
     Route: 048
     Dates: start: 20210816
  39. CIPROFLOXACIN. [Concomitant]
     Active Substance: CIPROFLOXACIN
     Indication: INFECTION PROPHYLAXIS
     Dosage: 1000 MILLIGRAM
     Route: 048
     Dates: start: 202105, end: 202105
  40. ARIXTRA [Concomitant]
     Active Substance: FONDAPARINUX SODIUM
     Indication: ANTICOAGULANT THERAPY
     Dosage: 7.5 MILLIGRAM
     Route: 058
     Dates: start: 20210805, end: 20210805
  41. ARIXTRA [Concomitant]
     Active Substance: FONDAPARINUX SODIUM
     Dosage: 2.5 MILLIGRAM
     Route: 058
     Dates: start: 20210731, end: 20210804
  42. IMODIUM [Concomitant]
     Active Substance: LOPERAMIDE HYDROCHLORIDE
     Dosage: 7.5 MILLIGRAM
     Route: 058
     Dates: start: 20210807, end: 20210813
  43. LOSARTAN. [Concomitant]
     Active Substance: LOSARTAN
     Dosage: 50MILLIGRAM
     Route: 048
     Dates: start: 20200723
  44. ACETAMINOPHEN. [Concomitant]
     Active Substance: ACETAMINOPHEN
     Indication: PAIN
     Route: 048
     Dates: start: 20200624, end: 20200707
  45. OXYCODONE [Concomitant]
     Active Substance: OXYCODONE
     Indication: ARTHRALGIA
     Dosage: 5?3.25 MILLIGRAM
     Route: 048
     Dates: start: 20181019
  46. OXYCODONE [Concomitant]
     Active Substance: OXYCODONE
     Indication: PAIN IN EXTREMITY
     Dosage: 10MG
     Route: 048
     Dates: start: 20200604, end: 20200622
  47. OXYCODONE [Concomitant]
     Active Substance: OXYCODONE
     Dosage: 10MG
     Route: 048
     Dates: start: 20200629, end: 20200629
  48. OXYCODONE [Concomitant]
     Active Substance: OXYCODONE
     Dosage: 5MG
     Route: 048
     Dates: start: 20200604, end: 20200707
  49. CEPHALEXIN. [Concomitant]
     Active Substance: CEPHALEXIN
     Indication: LOCALISED INFECTION
     Dosage: 500 MILLIGRAM
     Route: 048
     Dates: start: 20200413
  50. PANTOPRAZOLE [Concomitant]
     Active Substance: PANTOPRAZOLE
     Dosage: 40 MILLIGRAM
     Route: 041
     Dates: start: 20201206, end: 20201208
  51. PANTOPRAZOLE [Concomitant]
     Active Substance: PANTOPRAZOLE
     Dosage: 40 MILLIGRAM
     Route: 048
     Dates: start: 20201208
  52. LIDOCAINE. [Concomitant]
     Active Substance: LIDOCAINE
     Indication: ARTHRALGIA
     Dosage: PATCH
     Route: 061
     Dates: start: 2020
  53. ZETIA [Concomitant]
     Active Substance: EZETIMIBE
     Indication: HYPERLIPIDAEMIA
     Dosage: 10 MILLIGRAM
     Route: 048
     Dates: start: 20210419
  54. DEXTROSE. [Concomitant]
     Active Substance: DEXTROSE
     Indication: BLOOD GLUCOSE DECREASED
     Route: 041
     Dates: start: 20210806, end: 20210807
  55. HUMULIN NOS [Concomitant]
     Active Substance: INSULIN HUMAN
     Indication: TYPE 2 DIABETES MELLITUS
     Dosage: 1
     Route: 058
     Dates: start: 20210728, end: 20210729
  56. ACETAMINOPHEN. [Concomitant]
     Active Substance: ACETAMINOPHEN
     Indication: ARTHRITIS
     Route: 048
     Dates: start: 2008
  57. CLOPIDOGREL [Concomitant]
     Active Substance: CLOPIDOGREL BISULFATE
     Indication: ISCHAEMIA
  58. ROSUVASTATIN. [Concomitant]
     Active Substance: ROSUVASTATIN
     Indication: HYPERLIPIDAEMIA
     Dosage: 10 MILLIGRAM
     Route: 048
     Dates: start: 202010, end: 202102
  59. LIDOCAINE. [Concomitant]
     Active Substance: LIDOCAINE
     Dosage: 20ML
     Route: 061
     Dates: start: 20200701, end: 20200701
  60. LIDOCAINE. [Concomitant]
     Active Substance: LIDOCAINE
     Dosage: PATCH
     Route: 061
     Dates: start: 20200618, end: 20200707
  61. WARFARIN [Concomitant]
     Active Substance: WARFARIN
     Indication: THROMBOSIS PROPHYLAXIS
     Dosage: .6429 MILLIGRAM
     Route: 048
     Dates: start: 20201119, end: 20201202
  62. WARFARIN [Concomitant]
     Active Substance: WARFARIN
     Indication: PERIPHERAL VASCULAR DISORDER
     Dosage: 1.5 MILLIGRAM
     Route: 048
     Dates: start: 20201204, end: 20201204
  63. WARFARIN [Concomitant]
     Active Substance: WARFARIN
     Dosage: 3 MILLIGRAM
     Route: 048
     Dates: start: 20201219
  64. LIPITOR [Concomitant]
     Active Substance: ATORVASTATIN CALCIUM
     Indication: HYPERLIPIDAEMIA
     Dosage: 40 MILLIGRAM
     Route: 048
     Dates: start: 20210805
  65. COLACE [Concomitant]
     Active Substance: DOCUSATE SODIUM
     Indication: FAECES HARD
     Route: 048
     Dates: start: 20210728, end: 20210729
  66. HUMALOG [Concomitant]
     Active Substance: INSULIN LISPRO
     Indication: TYPE 2 DIABETES MELLITUS
     Dosage: 6 UNITS
     Route: 058
     Dates: start: 20210806, end: 20210806
  67. PREDNISONE. [Concomitant]
     Active Substance: PREDNISONE
     Dosage: 7.5 MILLIGRAM
     Route: 048
     Dates: start: 20200423
  68. PREDNISONE. [Concomitant]
     Active Substance: PREDNISONE
     Dosage: 10 MILLIGRAM
     Route: 048
     Dates: start: 20201221
  69. GABAPENTIN. [Concomitant]
     Active Substance: GABAPENTIN
     Indication: NEURALGIA
     Dosage: 600 MILLIGRAM
     Route: 048
     Dates: start: 202107
  70. OZANIMOD. [Suspect]
     Active Substance: OZANIMOD
     Indication: COLITIS ULCERATIVE
     Route: 048
     Dates: start: 20180925
  71. LOSARTAN. [Concomitant]
     Active Substance: LOSARTAN
     Dosage: 100 MILLIGRAM
     Route: 048
     Dates: start: 20200619, end: 20200629
  72. ACETAMINOPHEN. [Concomitant]
     Active Substance: ACETAMINOPHEN
     Indication: PAIN IN EXTREMITY
     Dosage: 2925 MILLIGRAM
     Route: 048
     Dates: start: 20200626, end: 20200629
  73. VICTOZA [Concomitant]
     Active Substance: LIRAGLUTIDE
     Indication: TYPE 2 DIABETES MELLITUS
     Dosage: 1.8 MILLIGRAM
     Route: 058
     Dates: start: 2017, end: 20200114
  74. COLCHICINE. [Concomitant]
     Active Substance: COLCHICINE
     Indication: CELLULITIS
  75. LIDOCAINE. [Concomitant]
     Active Substance: LIDOCAINE
     Indication: MAINTENANCE OF ANAESTHESIA
     Dosage: 30ML
     Route: 023
     Dates: start: 20200603, end: 20200624
  76. WARFARIN [Concomitant]
     Active Substance: WARFARIN
     Dosage: 3 MILLIGRAM
     Route: 048
     Dates: start: 20201208, end: 20201209
  77. CYMBALTA [Concomitant]
     Active Substance: DULOXETINE HYDROCHLORIDE
     Dosage: 40 MILLIGRAM
     Route: 048
     Dates: start: 20210420
  78. DIALYVITE/ZINC [Concomitant]
     Indication: SUPPLEMENTATION THERAPY
     Route: 048
     Dates: start: 20210806, end: 20210810
  79. MELATONIN [Concomitant]
     Active Substance: MELATONIN
     Indication: INSOMNIA
     Route: 048
     Dates: start: 20210805, end: 20210807
  80. NORMAL SALINE [Concomitant]
     Active Substance: SODIUM CHLORIDE
     Indication: ELECTROLYTE IMBALANCE
     Route: 041
     Dates: start: 20210805, end: 20210807
  81. GABAPENTIN. [Concomitant]
     Active Substance: GABAPENTIN
     Dosage: 2.5 MILLIGRAM
     Route: 058
     Dates: start: 20210731, end: 20210804
  82. GABAPENTIN. [Concomitant]
     Active Substance: GABAPENTIN
     Dosage: 7.5 MILLIGRAM
     Route: 058
     Dates: start: 20210807, end: 20210813
  83. GABAPENTIN. [Concomitant]
     Active Substance: GABAPENTIN
     Dosage: 900 MILLIGRAM
     Route: 048
     Dates: start: 20200623
  84. IMODIUM [Concomitant]
     Active Substance: LOPERAMIDE HYDROCHLORIDE
     Indication: DIARRHOEA
     Route: 048
     Dates: start: 202106
  85. SENNA [Concomitant]
     Active Substance: SENNA LEAF\SENNOSIDES\SENNOSIDES A AND B
     Indication: CONSTIPATION PROPHYLAXIS
     Dosage: 2 TABLETS
     Route: 048
     Dates: start: 20210728, end: 20210729

REACTIONS (1)
  - Ischaemic stroke [Recovered/Resolved]

NARRATIVE: CASE EVENT DATE: 20210802
